FAERS Safety Report 10094079 (Version 1)
Quarter: 2014Q2

REPORT INFORMATION
  Report Type: Spontaneous
  Country: GB (occurrence: GB)
  Receive Date: 20140422
  Receipt Date: 20140422
  Transmission Date: 20141212
  Serious: Yes (Other)
  Sender: FDA-Public Use
  Company Number: GB-BIOGENIDEC-2014BI036535

PATIENT
  Age: 30 Year
  Sex: Female

DRUGS (5)
  1. TYSABRI [Suspect]
     Indication: MULTIPLE SCLEROSIS
     Route: 042
  2. DEXAMETHASONE [Concomitant]
     Indication: SUPPORTIVE CARE
     Route: 048
  3. DEXAMETHASONE [Concomitant]
     Indication: SUPPORTIVE CARE
     Route: 048
  4. DEXAMETHASONE [Concomitant]
     Indication: SUPPORTIVE CARE
     Route: 048
  5. DEXAMETHASONE [Concomitant]
     Indication: SUPPORTIVE CARE
     Route: 048

REACTIONS (1)
  - Complex partial seizures [Recovered/Resolved]
